FAERS Safety Report 9438439 (Version 1)
Quarter: 2013Q3

REPORT INFORMATION
  Report Type: Spontaneous
  Country: US (occurrence: US)
  Receive Date: 20130802
  Receipt Date: 20130802
  Transmission Date: 20140515
  Serious: Yes (Hospitalization)
  Sender: FDA-Public Use
  Company Number: US-GLAXOSMITHKLINE-A0786262A

PATIENT
  Age: 62 Year
  Sex: Male
  Weight: 94.1 kg

DRUGS (2)
  1. AVANDAMET [Suspect]
     Indication: DIABETES MELLITUS
     Route: 048
     Dates: start: 20020802, end: 20040809
  2. AVANDIA [Suspect]
     Indication: DIABETES MELLITUS
     Dosage: 4MG PER DAY
     Route: 048
     Dates: end: 200711

REACTIONS (4)
  - Myocardial infarction [Unknown]
  - Cardiac operation [Unknown]
  - Cardiac failure congestive [Unknown]
  - Atrial fibrillation [Unknown]
